FAERS Safety Report 4353541-X (Version None)
Quarter: 2004Q2

REPORT INFORMATION
  Report Type: 
  Country: None (occurrence: None)
  Receive Date: 20040430
  Receipt Date: 20040419
  Transmission Date: 20050107
  Serious: Yes (Other)
  Sender: FDA-Public Use
  Company Number: 2004AP02234

PATIENT
  Sex: Female

DRUGS (1)
  1. LOSEC [Suspect]
     Dosage: 20 MG DAILY PO
     Route: 048

REACTIONS (4)
  - HYPERSOMNIA [None]
  - MEDICATION ERROR [None]
  - MUTISM [None]
  - OVERDOSE [None]
